FAERS Safety Report 7820351 (Version 15)
Quarter: 2012Q4

REPORT INFORMATION
  Report Type: 
  Country: CA (occurrence: CA)
  Receive Date: 20110221
  Receipt Date: 20121031
  Transmission Date: 20130627
  Serious: Yes (Other)
  Sender: FDA-Public Use
  Company Number: PHHY2011CA10753

PATIENT
  Sex: Male

DRUGS (3)
  1. SANDOSTATIN LAR [Suspect]
     Indication: CARCINOID SYNDROME
     Dosage: 30 mg, QMO
     Route: 030
     Dates: start: 20061213
  2. SANDOSTATIN LAR [Suspect]
     Dosage: 30 mg, every 4 weeks
     Route: 030
     Dates: end: 20120524
  3. AMIODARONE [Suspect]

REACTIONS (6)
  - Tachycardia [Recovering/Resolving]
  - Intestinal haemorrhage [Recovered/Resolved]
  - Limb injury [Unknown]
  - Constipation [Unknown]
  - Heart rate increased [Recovering/Resolving]
  - Cardiac disorder [Unknown]
